FAERS Safety Report 18947393 (Version 5)
Quarter: 2021Q2

REPORT INFORMATION
  Report Type: Spontaneous
  Country: GB (occurrence: GB)
  Receive Date: 20210226
  Receipt Date: 20210627
  Transmission Date: 20210717
  Serious: Yes (Other)
  Sender: FDA-Public Use
  Company Number: NVSC2021GB027119

PATIENT
  Age: 30 Year
  Sex: Male

DRUGS (5)
  1. CYCLIZINE HYDROCHLORIDE [Suspect]
     Active Substance: CYCLIZINE HYDROCHLORIDE
     Indication: PRODUCT USED FOR UNKNOWN INDICATION
     Dosage: UNK
     Route: 042
     Dates: start: 20201230, end: 20201230
  2. QUETIAPINE FUMARATE. [Suspect]
     Active Substance: QUETIAPINE FUMARATE
     Indication: PRODUCT USED FOR UNKNOWN INDICATION
     Dosage: UNK
     Route: 048
     Dates: start: 20201230, end: 20201230
  3. HALDOL [Suspect]
     Active Substance: HALOPERIDOL
     Indication: PRODUCT USED FOR UNKNOWN INDICATION
     Dosage: UNK
     Route: 042
     Dates: start: 20201229, end: 20201230
  4. HALOPERIDOL. [Suspect]
     Active Substance: HALOPERIDOL
     Indication: PRODUCT USED FOR UNKNOWN INDICATION
     Dosage: UNK
     Route: 042
     Dates: start: 20201229, end: 20201230
  5. DOZIC [RISPERIDONE] [Suspect]
     Active Substance: RISPERIDONE
     Indication: PRODUCT USED FOR UNKNOWN INDICATION
     Dosage: UNK
     Route: 042
     Dates: start: 20201229, end: 20201230

REACTIONS (5)
  - Tongue disorder [Recovered/Resolved]
  - Bruxism [Recovered/Resolved]
  - Off label use [Unknown]
  - Incorrect route of product administration [Unknown]
  - Dystonia [Recovered/Resolved]

NARRATIVE: CASE EVENT DATE: 20201229
